FAERS Safety Report 9653377 (Version 3)
Quarter: 2013Q4

REPORT INFORMATION
  Report Type: Report from Study
  Country: JP (occurrence: JP)
  Receive Date: 20131029
  Receipt Date: 20131223
  Transmission Date: 20140711
  Serious: Yes (Death, Hospitalization, Other)
  Sender: FDA-Public Use
  Company Number: JP-ABBVIE-13X-087-1108464-00

PATIENT
  Age: 78 Year
  Sex: Male

DRUGS (19)
  1. LIPACREON [Suspect]
     Indication: PANCREATIC INSUFFICIENCY
     Route: 048
     Dates: start: 20120913, end: 20130201
  2. LIPACREON [Suspect]
     Route: 048
     Dates: start: 20130219, end: 20130508
  3. TS-1 [Suspect]
     Indication: PRODUCT USED FOR UNKNOWN INDICATION
     Route: 048
     Dates: start: 20130108, end: 20130121
  4. TS-1 [Suspect]
     Route: 048
     Dates: start: 20130129, end: 20130201
  5. LOXOPROFEN SODIUM [Suspect]
     Indication: CANCER PAIN
     Route: 048
     Dates: start: 20130428
  6. OXYCODONE HYDROCHLORIDE [Suspect]
     Indication: CANCER PAIN
     Route: 048
     Dates: start: 20130429, end: 20130429
  7. OXYCODONE HYDROCHLORIDE [Suspect]
     Dates: start: 20130430, end: 20130506
  8. FENTANYL CITRATE [Suspect]
     Indication: CANCER PAIN
     Route: 062
     Dates: start: 20130507
  9. FAMOTIDINE [Concomitant]
     Indication: PANCREATIC INSUFFICIENCY
     Route: 048
     Dates: start: 20120911
  10. FERROUS CITRATE [Concomitant]
     Indication: PRODUCT USED FOR UNKNOWN INDICATION
     Route: 048
     Dates: start: 20121026
  11. DAIKENTYUTO [Concomitant]
     Indication: PRODUCT USED FOR UNKNOWN INDICATION
     Route: 048
     Dates: start: 20121026, end: 20130201
  12. DAIKENTYUTO [Concomitant]
     Dates: start: 20130219
  13. LOSARTAN POTASSIUM [Concomitant]
     Indication: ACUTE MYOCARDIAL INFARCTION
     Dates: start: 20130201
  14. LOSARTAN POTASSIUM [Concomitant]
  15. REBAMIPIDE [Concomitant]
     Indication: GASTROINTESTINAL DISORDER
     Route: 048
     Dates: start: 20130428
  16. REBAMIPIDE [Concomitant]
     Indication: PROPHYLAXIS
  17. ALOGLIPTIN BENZOATE [Concomitant]
     Indication: PRODUCT USED FOR UNKNOWN INDICATION
     Route: 048
     Dates: start: 20130430
  18. PROCHLORPERAZINE [Concomitant]
     Indication: NAUSEA
     Route: 048
     Dates: start: 20130430
  19. PROCHLORPERAZINE [Concomitant]
     Indication: PROPHYLAXIS

REACTIONS (7)
  - Pancreatic carcinoma [Fatal]
  - Cancer pain [Fatal]
  - Acute myocardial infarction [Recovered/Resolved]
  - Decreased appetite [Unknown]
  - Constipation [Not Recovered/Not Resolved]
  - Diarrhoea [Recovered/Resolved]
  - Nausea [Recovered/Resolved]
